FAERS Safety Report 19682249 (Version 1)
Quarter: 2021Q3

REPORT INFORMATION
  Report Type: Spontaneous
  Country: BR (occurrence: BR)
  Receive Date: 20210810
  Receipt Date: 20210810
  Transmission Date: 20211014
  Serious: Yes (Life-Threatening, Hospitalization, Other)
  Sender: FDA-Public Use
  Company Number: BR-ASTRAZENECA-2021A672221

PATIENT
  Age: 30200 Day
  Sex: Female
  Weight: 75 kg

DRUGS (10)
  1. VENLAFAXINE [Concomitant]
     Active Substance: VENLAFAXINE HYDROCHLORIDE
     Dosage: ONCE
  2. PRESSART [Concomitant]
  3. ACERTIL [Concomitant]
     Active Substance: PERINDOPRIL
  4. AMIODARONE [Concomitant]
     Active Substance: AMIODARONE
  5. GLICAZIDE [Concomitant]
     Active Substance: GLICLAZIDE
  6. EDOXABAN [Concomitant]
     Active Substance: EDOXABAN TOSYLATE
     Dosage: ONE TABLET
  7. OMEPRAZOLE. [Suspect]
     Active Substance: OMEPRAZOLE
     Route: 048
  8. GLIFAGE [Concomitant]
     Active Substance: METFORMIN HYDROCHLORIDE
  9. TAPAZOLE [Concomitant]
     Active Substance: METHIMAZOLE
  10. ISOSORBIDE. [Concomitant]
     Active Substance: ISOSORBIDE

REACTIONS (2)
  - Myasthenia gravis [Not Recovered/Not Resolved]
  - Myasthenia gravis crisis [Not Recovered/Not Resolved]

NARRATIVE: CASE EVENT DATE: 20210512
